FAERS Safety Report 6656775-4 (Version None)
Quarter: 2010Q1

REPORT INFORMATION
  Report Type: 
  Country: None (occurrence: None)
  Receive Date: 20100329
  Receipt Date: 20091229
  Transmission Date: 20100710
  Serious: Yes (Hospitalization)
  Sender: FDA-Public Use
  Company Number: PHHY2009TW61048

PATIENT

DRUGS (1)
  1. EXJADE [Suspect]

REACTIONS (2)
  - FATIGUE [None]
  - PALPITATIONS [None]
